FAERS Safety Report 6775333-4 (Version None)
Quarter: 2010Q2

REPORT INFORMATION
  Report Type: 
  Country: None (occurrence: None)
  Receive Date: 20100617
  Receipt Date: 20100607
  Transmission Date: 20101027
  Serious: Yes (Other)
  Sender: FDA-Public Use
  Company Number: US-PFIZER INC-2010071945

PATIENT
  Sex: Female

DRUGS (4)
  1. TOVIAZ [Suspect]
     Indication: HYPERTONIC BLADDER
     Dosage: UNK
     Dates: start: 20100101, end: 20100101
  2. LUTEIN [Concomitant]
     Indication: HYPERSENSITIVITY
     Dosage: UNK
  3. THEOPHYLLINE [Concomitant]
     Indication: HYPERSENSITIVITY
     Dosage: 500 MG, 2X/DAY
  4. BENADRYL [Concomitant]
     Indication: HYPERSENSITIVITY
     Dosage: UNK

REACTIONS (1)
  - VISION BLURRED [None]
